FAERS Safety Report 7928527-6 (Version None)
Quarter: 2011Q4

REPORT INFORMATION
  Report Type: 
  Country: None (occurrence: None)
  Receive Date: 20111118
  Receipt Date: 20111115
  Transmission Date: 20120403
  Serious: Yes (Other)
  Sender: FDA-Public Use
  Company Number: US-BAYER-2011-111288

PATIENT
  Age: 78 Year
  Sex: Female

DRUGS (5)
  1. HYDROCODONE BITARTRATE [Concomitant]
     Indication: PAIN
  2. PREDNISONE TAB [Suspect]
     Indication: PAIN
  3. AVELOX [Suspect]
     Indication: CHRONIC OBSTRUCTIVE PULMONARY DISEASE
     Dosage: UNK
     Route: 042
     Dates: start: 20110901
  4. AVELOX [Suspect]
     Indication: PAIN
     Dosage: 400 MG, UNK
     Route: 048
  5. LISINOPRIL [Concomitant]

REACTIONS (5)
  - JOINT STIFFNESS [None]
  - PAIN IN EXTREMITY [None]
  - DIZZINESS [None]
  - TENDONITIS [None]
  - MYALGIA [None]
